FAERS Safety Report 4302278-1 (Version None)
Quarter: 2004Q1

REPORT INFORMATION
  Report Type: 
  Country: None (occurrence: None)
  Receive Date: 20040223
  Receipt Date: 20040213
  Transmission Date: 20041129
  Serious: Yes (Hospitalization)
  Sender: FDA-Public Use
  Company Number: WAES 0402AUS00097

PATIENT
  Age: 79 Year
  Sex: Female
  Weight: 74 kg

DRUGS (9)
  1. AMLODIPINE BESYLATE [Suspect]
     Indication: ESSENTIAL HYPERTENSION
     Route: 048
     Dates: start: 19960101, end: 19981222
  2. ASPIRIN [Suspect]
     Indication: MYOCARDIAL ISCHAEMIA
     Route: 048
     Dates: end: 19981222
  3. DIGOXIN [Concomitant]
     Indication: CARDIAC FAILURE CONGESTIVE
     Route: 048
     Dates: start: 19980801
  4. EDECRIN [Suspect]
     Indication: ESSENTIAL HYPERTENSION
     Dates: start: 19981101, end: 19981222
  5. INDAPAMIDE [Concomitant]
     Dates: end: 19981220
  6. METFORMIN HYDROCHLORIDE [Concomitant]
     Indication: DIABETES MELLITUS
     Route: 048
     Dates: start: 19960601, end: 19990106
  7. METOPROLOL TARTRATE [Concomitant]
     Indication: ESSENTIAL HYPERTENSION
     Route: 048
     Dates: start: 19980101
  8. ZOCOR [Suspect]
     Route: 048
     Dates: start: 19941201, end: 19981220
  9. TRANDOLAPRIL [Concomitant]
     Route: 048
     Dates: start: 19981101

REACTIONS (5)
  - ANURIA [None]
  - ASTHENIA [None]
  - MYALGIA [None]
  - RENAL FAILURE ACUTE [None]
  - RHABDOMYOLYSIS [None]
